FAERS Safety Report 5324218-9 (Version None)
Quarter: 2007Q2

REPORT INFORMATION
  Report Type: 
  Country: None (occurrence: None)
  Receive Date: 20070507
  Receipt Date: 20070425
  Transmission Date: 20071010
  Serious: Yes (Hospitalization, Other)
  Sender: FDA-Public Use
  Company Number: FABR-11940

PATIENT
  Age: 52 Year
  Sex: Male
  Weight: 75 kg

DRUGS (3)
  1. FABRAZYME [Suspect]
     Indication: FABRY'S DISEASE
     Dosage: 70 MG QOW IV
     Route: 042
     Dates: start: 20060113
  2. KARDEGIC [Concomitant]
  3. LASIX [Concomitant]

REACTIONS (5)
  - CORONARY ARTERY DISEASE [None]
  - DIALYSIS [None]
  - LEFT VENTRICULAR HYPERTROPHY [None]
  - MEDIASTINITIS [None]
  - RENAL FAILURE [None]
